FAERS Safety Report 5088445-0 (Version None)
Quarter: 2006Q3

REPORT INFORMATION
  Report Type: 
  Country: None (occurrence: None)
  Receive Date: 20060822
  Receipt Date: 20060809
  Transmission Date: 20061208
  Serious: Yes (Hospitalization, Other)
  Sender: FDA-Public Use
  Company Number: 2006098318

PATIENT
  Age: 59 Year
  Sex: Male

DRUGS (1)
  1. NEURONTIN [Suspect]
     Indication: DRUG USE FOR UNKNOWN INDICATION
     Dosage: ORAL
     Route: 048
     Dates: start: 20060408, end: 20060411

REACTIONS (12)
  - ALCOHOLISM [None]
  - CENTRAL-ALVEOLAR HYPOVENTILATION [None]
  - ERYTHROSIS [None]
  - HEPATIC CIRRHOSIS [None]
  - HEPATIC FAILURE [None]
  - HEPATIC FIBROSIS [None]
  - HEPATITIS ACUTE [None]
  - HYPOVOLAEMIA [None]
  - INGUINAL HERNIA [None]
  - NONSPECIFIC REACTION [None]
  - OVERDOSE [None]
  - RENAL FAILURE ACUTE [None]
